FAERS Safety Report 4501011-8 (Version None)
Quarter: 2004Q4

REPORT INFORMATION
  Report Type: 
  Country: None (occurrence: None)
  Receive Date: 20041115
  Receipt Date: 20041103
  Transmission Date: 20050328
  Serious: Yes (Hospitalization)
  Sender: FDA-Public Use
  Company Number: GB-GLAXOSMITHKLINE-B0350905A

PATIENT
  Sex: Female

DRUGS (1)
  1. TRIZIVIR [Suspect]
     Indication: HIV INFECTION
     Route: 065
     Dates: end: 20041102

REACTIONS (2)
  - DRUG HYPERSENSITIVITY [None]
  - SWELLING FACE [None]
